FAERS Safety Report 8826461 (Version 2)
Quarter: 2012Q4

REPORT INFORMATION
  Report Type: Report from Study
  Country: FR (occurrence: FR)
  Receive Date: 20121005
  Receipt Date: 20121017
  Transmission Date: 20130627
  Serious: Yes (Other)
  Sender: FDA-Public Use
  Company Number: PHHO2012FR013585

PATIENT
  Age: 8 Year
  Sex: Male
  Weight: 37.4 kg

DRUGS (1)
  1. ACZ885 [Suspect]
     Indication: JUVENILE ARTHRITIS
     Dosage: 2 mg/kg, every 6 weeks
     Route: 058
     Dates: start: 20101108, end: 20120817

REACTIONS (2)
  - Cytomegalovirus infection [Recovered/Resolved]
  - Hepatocellular injury [Recovered/Resolved]
